FAERS Safety Report 7701285-6 (Version None)
Quarter: 2011Q3

REPORT INFORMATION
  Report Type: 
  Country: None (occurrence: None)
  Receive Date: 20110819
  Receipt Date: 20110819
  Transmission Date: 20111222
  Serious: Yes (Life-Threatening, Hospitalization)
  Sender: FDA-Public Use
  Company Number: None

PATIENT
  Age: 88 Year
  Sex: Female

DRUGS (1)
  1. HYDROCHLOROTHIAZIDE [Suspect]
     Dosage: 25 MG PO DAILY
     Dates: start: 20110201, end: 20110416

REACTIONS (8)
  - NAUSEA [None]
  - VISUAL IMPAIRMENT [None]
  - ATRIAL FIBRILLATION [None]
  - VOMITING [None]
  - VISION BLURRED [None]
  - HEART RATE INCREASED [None]
  - ASTHENIA [None]
  - DIZZINESS [None]
